FAERS Safety Report 24569935 (Version 3)
Quarter: 2024Q4

REPORT INFORMATION
  Report Type: Spontaneous
  Country: US (occurrence: US)
  Receive Date: 20241031
  Receipt Date: 20241202
  Transmission Date: 20250114
  Serious: No
  Sender: ROCHE
  Company Number: US-ROCHE-10000121612

PATIENT
  Age: 77 Year
  Sex: Female
  Weight: 79.37 kg

DRUGS (7)
  1. ACTEMRA [Suspect]
     Active Substance: TOCILIZUMAB
     Indication: Giant cell arteritis
     Dosage: READY FILL PEN
     Route: 058
     Dates: start: 20241022
  2. LISINOPRIL [Concomitant]
     Active Substance: LISINOPRIL
  3. HYDROTHIAZIDE [Concomitant]
  4. SYNTHROID [Concomitant]
     Active Substance: LEVOTHYROXINE SODIUM
  5. CALCIUM [Concomitant]
     Active Substance: CALCIUM
  6. ATOVAQUONE [Concomitant]
     Active Substance: ATOVAQUONE
  7. PREDNISONE [Concomitant]
     Active Substance: PREDNISONE

REACTIONS (9)
  - Fatigue [Unknown]
  - Lip swelling [Unknown]
  - Chapped lips [Unknown]
  - Rash [Unknown]
  - Hypoaesthesia [Unknown]
  - Nervousness [Unknown]
  - Hyperhidrosis [Unknown]
  - Pruritus [Unknown]
  - Hepatic enzyme increased [Unknown]

NARRATIVE: CASE EVENT DATE: 20241023
